FAERS Safety Report 21835562 (Version 2)
Quarter: 2023Q2

REPORT INFORMATION
  Report Type: Spontaneous
  Country: JP (occurrence: JP)
  Receive Date: 20230109
  Receipt Date: 20230621
  Transmission Date: 20230721
  Serious: Yes (Other)
  Sender: FDA-Public Use
  Company Number: JP-KYOWAKIRIN-2023AKK000014

PATIENT
  Age: 65 Year
  Sex: Male

DRUGS (4)
  1. PEGFILGRASTIM [Suspect]
     Active Substance: PEGFILGRASTIM
     Indication: Colony stimulating factor therapy
     Dosage: UNK, Q4WK
     Route: 058
     Dates: start: 20221221, end: 20230213
  2. FLUOROURACIL [Suspect]
     Active Substance: FLUOROURACIL
     Indication: Oesophageal carcinoma
     Dosage: 1300 MILLIGRAM, Q4WK
     Route: 042
     Dates: start: 20221221, end: 20230213
  3. CISPLATIN [Concomitant]
     Active Substance: CISPLATIN
     Indication: Oesophageal carcinoma
     Dosage: UNK
     Route: 065
  4. DOCETAXEL [Concomitant]
     Active Substance: DOCETAXEL
     Indication: Oesophageal carcinoma
     Dosage: UNK
     Route: 065

REACTIONS (2)
  - Neutropenia [Unknown]
  - Drug ineffective [Unknown]
